FAERS Safety Report 7423319-9 (Version None)
Quarter: 2011Q2

REPORT INFORMATION
  Report Type: 
  Country: None (occurrence: None)
  Receive Date: 20110419
  Receipt Date: 20110404
  Transmission Date: 20111010
  Serious: Yes (Hospitalization, Other)
  Sender: FDA-Public Use
  Company Number: PHHY2011US23075

PATIENT
  Sex: Female

DRUGS (14)
  1. TEKTURNA [Suspect]
     Dosage: 300 MG, QD
  2. VITAMINS [Concomitant]
  3. LEVOXYL [Concomitant]
     Dosage: 50 MG, UNK
  4. TENORMIN [Concomitant]
     Dosage: 100 MG, UNK
  5. XANAX [Concomitant]
  6. TEKTURNA [Suspect]
     Dosage: 150 MG, QD
  7. LISINOPRIL [Suspect]
  8. MELATONIN [Concomitant]
  9. LECOTHYROXIN [Concomitant]
  10. TEKTURNA HCT [Suspect]
     Dosage: 300 MG, QD
  11. VAGIFEM [Concomitant]
  12. BENICAR [Suspect]
  13. FLONASE [Concomitant]
  14. SPIRONOLACTONE [Concomitant]
     Dosage: 25 MG, BID

REACTIONS (8)
  - LEFT VENTRICULAR HYPERTROPHY [None]
  - SLEEP DISORDER [None]
  - RENAL DISORDER [None]
  - VERTIGO [None]
  - DRUG INEFFECTIVE [None]
  - HYPERTENSION [None]
  - NERVOUSNESS [None]
  - FLANK PAIN [None]
